FAERS Safety Report 5384407-4 (Version None)
Quarter: 2007Q3

REPORT INFORMATION
  Report Type: 
  Country: None (occurrence: None)
  Receive Date: 20070711
  Receipt Date: 20070226
  Transmission Date: 20080115
  Serious: No
  Sender: FDA-Public Use
  Company Number: US-AMGEN-KDL212888

PATIENT
  Sex: Male

DRUGS (2)
  1. KINERET [Suspect]
     Indication: DRUG USE FOR UNKNOWN INDICATION
     Dates: start: 20070115
  2. METHOTREXATE [Concomitant]
     Dates: start: 20050201

REACTIONS (1)
  - OEDEMA PERIPHERAL [None]
